FAERS Safety Report 24444427 (Version 1)
Quarter: 2024Q4

REPORT INFORMATION
  Report Type: Spontaneous
  Country: AU (occurrence: AU)
  Receive Date: 20241016
  Receipt Date: 20241016
  Transmission Date: 20250114
  Serious: Yes (Hospitalization)
  Sender: SERVIER
  Company Number: AU-SERVIER-S24012976

PATIENT

DRUGS (1)
  1. TIBSOVO [Suspect]
     Active Substance: IVOSIDENIB
     Indication: Product used for unknown indication
     Dosage: 500 MG, QD
     Route: 048
     Dates: start: 20240827, end: 20240923

REACTIONS (2)
  - Pain [Unknown]
  - Dysphagia [Not Recovered/Not Resolved]
